FAERS Safety Report 6746270-6 (Version None)
Quarter: 2010Q2

REPORT INFORMATION
  Report Type: 
  Country: None (occurrence: None)
  Receive Date: 20100528
  Receipt Date: 20091215
  Transmission Date: 20101027
  Serious: No
  Sender: FDA-Public Use
  Company Number: US-ASTRAZENECA-2009SE32368

PATIENT
  Sex: Female

DRUGS (3)
  1. PRILOSEC [Suspect]
     Indication: HELICOBACTER INFECTION
     Route: 048
     Dates: start: 20091120
  2. AMOXICILLIN [Suspect]
     Indication: HELICOBACTER INFECTION
     Dosage: 500 MG, BID2SDO
     Route: 048
     Dates: start: 20091120
  3. CLARITHROMYCIN [Suspect]
     Indication: HELICOBACTER INFECTION
     Dates: start: 20091120

REACTIONS (2)
  - ABDOMINAL DISCOMFORT [None]
  - DRUG EXPOSURE DURING PREGNANCY [None]
